FAERS Safety Report 15316793 (Version 1)
Quarter: 2018Q3

REPORT INFORMATION
  Report Type: Spontaneous
  Country: IT (occurrence: IT)
  Receive Date: 20180824
  Receipt Date: 20180824
  Transmission Date: 20181010
  Serious: Yes (Other)
  Sender: FDA-Public Use
  Company Number: PHHY2018IT076883

PATIENT
  Age: 33 Year
  Sex: Male

DRUGS (1)
  1. CEFTRIAXONE. [Suspect]
     Active Substance: CEFTRIAXONE
     Indication: STAPHYLOCOCCAL INFECTION
     Dosage: 1 DF, TOTAL
     Route: 030
     Dates: start: 20180612, end: 20180612

REACTIONS (5)
  - Conjunctival hyperaemia [Recovering/Resolving]
  - Rhinitis [Recovering/Resolving]
  - Hypersensitivity [Recovering/Resolving]
  - Pruritus allergic [Recovering/Resolving]
  - Abdominal tenderness [Recovering/Resolving]

NARRATIVE: CASE EVENT DATE: 20180612
